FAERS Safety Report 26071839 (Version 1)
Quarter: 2025Q4

REPORT INFORMATION
  Report Type: Spontaneous
  Country: US (occurrence: None)
  Receive Date: 20251120
  Receipt Date: 20251120
  Transmission Date: 20260117
  Serious: Yes (Other)
  Sender: FDA-CTU
  Company Number: None

PATIENT
  Age: 37 Year
  Sex: Female
  Weight: 61.51 kg

DRUGS (4)
  1. OLANZAPINE [Suspect]
     Active Substance: OLANZAPINE
     Indication: Bipolar disorder
     Dosage: FREQUENCY : AT BEDTIME;?
     Route: 048
     Dates: start: 20250902, end: 20250910
  2. Olanzapine 10 mg HS [Concomitant]
     Dates: start: 20250902, end: 20250910
  3. Benztropine 1 mg q8hr prn [Concomitant]
  4. Quetiapine 200 mg HS [Concomitant]

REACTIONS (2)
  - Fatigue [None]
  - Akathisia [None]

NARRATIVE: CASE EVENT DATE: 20250909
